FAERS Safety Report 22287099 (Version 1)
Quarter: 2023Q2

REPORT INFORMATION
  Report Type: Report from Study
  Country: US (occurrence: US)
  Receive Date: 20230505
  Receipt Date: 20230505
  Transmission Date: 20230722
  Serious: Yes (Hospitalization)
  Sender: FDA-Public Use
  Company Number: US-002147023-NVSC2023US099247

PATIENT
  Sex: Female

DRUGS (1)
  1. TABRECTA [Suspect]
     Active Substance: CAPMATINIB
     Indication: Product used for unknown indication
     Dosage: 1 DOSAGE FORM, QD ((LOWER DOSE))
     Route: 065

REACTIONS (3)
  - Fall [Unknown]
  - Urinary tract infection [Unknown]
  - Asthenia [Unknown]
